FAERS Safety Report 9810182 (Version 1)
Quarter: 2014Q1

REPORT INFORMATION
  Report Type: Spontaneous
  Country: US (occurrence: US)
  Receive Date: 20140110
  Receipt Date: 20140110
  Transmission Date: 20141002
  Serious: Yes (Hospitalization)
  Sender: FDA-Public Use
  Company Number: US-SANOFI-AVENTIS-2013SA072561

PATIENT
  Age: 63 Year
  Sex: Female

DRUGS (18)
  1. PLAVIX [Suspect]
     Indication: PROPHYLAXIS
     Route: 065
     Dates: end: 20091001
  2. ASPIRIN [Suspect]
     Indication: PROPHYLAXIS
     Route: 065
     Dates: end: 20091001
  3. TOPROL XL [Concomitant]
  4. CRESTOR [Concomitant]
     Dates: start: 2009
  5. LANTUS [Concomitant]
     Indication: PROPHYLAXIS
     Dosage: DOSE REPORTED AS SLIDING SCALE DOSE:12 UNIT(S)
     Dates: start: 20090812
  6. GLIBENCLAMIDE/METFORMIN HYDROCHLORIDE [Concomitant]
     Indication: PROPHYLAXIS
     Dates: start: 2009
  7. METFORMIN [Concomitant]
     Indication: PROPHYLAXIS
     Dates: start: 2009
  8. GLIBENCLAMIDE [Concomitant]
  9. BEVACIZUMAB [Concomitant]
     Indication: HER-2 POSITIVE BREAST CANCER
     Dosage: FORM; VIAL
     Route: 042
  10. TRASTUZUMAB [Concomitant]
     Indication: HER-2 POSITIVE BREAST CANCER
     Dosage: FORM; VIAL, DOSING LEVEL: 8/6 TOTAL DOSE: 675 TO 515 MG. LAST DOSE PRIOR TO EVENT ON 23-SEP-2009
     Route: 042
     Dates: start: 20090610
  11. CARBOPLATIN [Concomitant]
     Indication: HER-2 POSITIVE BREAST CANCER
     Dosage: LAST DOSE PRIOR TO EVET ON 23-SEP-2009, DOSE; 6 AUC, FORM, VIAL
     Route: 042
     Dates: start: 20090610
  12. CARBOPLATIN [Concomitant]
     Indication: HER-2 POSITIVE BREAST CANCER
     Dosage: TOTAL DOSE: 730 UNIT: AUC FORM: VIAL, LAST DOSE PRIOR TO EVENT ON 23-SEP-2009, DOSE: 6 AUC
     Route: 042
  13. CARBOPLATIN [Concomitant]
     Indication: HER-2 POSITIVE BREAST CANCER
     Dosage: TOTAL DOSE: 730 UNIT : AUC FORM: VIAL, LAST DOSE PRIOR TO EVENT ON 23-SEP-2009
     Route: 042
  14. CARBOPLATIN [Concomitant]
     Indication: HER-2 POSITIVE BREAST CANCER
     Dosage: TOTAL DOSE: 754 UNIT: AUC FORM: VIAL, LAST DOSE PRIOR TO EVENT ON 23-SEP-2009, DOSE: 6 AUC
     Route: 042
  15. CARBOPLATIN [Concomitant]
     Indication: HER-2 POSITIVE BREAST CANCER
     Dosage: TOTAL DOSE: 680 UNIT: AUC FORM: VIAL, LAST DOSE PRIOR TO EVENT ON 23-SEP-2009
     Route: 042
  16. CARBOPLATIN [Concomitant]
     Indication: HER-2 POSITIVE BREAST CANCER
     Dosage: TOTAL DOSE: 670 UNIT: AUC FORM: VIAL, LAST DOSE PRIOR TO EVENT ON 23-SEP-2009
     Route: 042
  17. CARBOPLATIN [Concomitant]
     Indication: HER-2 POSITIVE BREAST CANCER
     Dosage: TOTAL DOSE: 670 UNIT: AUC FORM: VIAL, LAST DOSE PRIOR TO EVENT ON 23-SEP-2009
     Route: 042
  18. DOCETAXEL [Concomitant]
     Indication: HER-2 POSITIVE BREAST CANCER
     Dosage: FORM: VIAL, LAST DOSE PRIOR EVENT ON 23 SEP 09, TOTAL DOSE: 147 MG/M2 (147 MG/M2)
     Route: 042
     Dates: start: 20090610

REACTIONS (1)
  - Small intestinal haemorrhage [Recovered/Resolved]
